FAERS Safety Report 25818567 (Version 3)
Quarter: 2025Q4

REPORT INFORMATION
  Report Type: Spontaneous
  Country: JP (occurrence: JP)
  Receive Date: 20250918
  Receipt Date: 20251002
  Transmission Date: 20260117
  Serious: Yes (Other)
  Sender: UCB
  Company Number: JP-UCBJ-CD202512027UCBPHAPROD

PATIENT

DRUGS (1)
  1. LEVETIRACETAM [Suspect]
     Active Substance: LEVETIRACETAM
     Indication: Product used for unknown indication
     Dosage: UNK
     Route: 048

REACTIONS (1)
  - Intentional self-injury [Unknown]
